FAERS Safety Report 16716226 (Version 4)
Quarter: 2025Q4

REPORT INFORMATION
  Report Type: Spontaneous
  Country: AU (occurrence: AU)
  Receive Date: 20190819
  Receipt Date: 20251003
  Transmission Date: 20260117
  Serious: Yes (Other)
  Sender: PFIZER
  Company Number: AU-MLMSERVICE-20190807-1886800-1

PATIENT
  Age: 52 Year
  Sex: Male

DRUGS (12)
  1. METHYLPREDNISOLONE SODIUM SUCCINATE [Suspect]
     Active Substance: METHYLPREDNISOLONE SODIUM SUCCINATE
     Indication: Immunosuppressant drug therapy
     Dosage: 1500 MG, UNK (PULSE)
     Route: 042
     Dates: start: 201804
  2. METHYLPREDNISOLONE SODIUM SUCCINATE [Suspect]
     Active Substance: METHYLPREDNISOLONE SODIUM SUCCINATE
     Dosage: UNK (PULSE)
     Route: 042
     Dates: start: 2018
  3. PREDNISOLONE [Suspect]
     Active Substance: PREDNISOLONE
     Indication: Immunosuppressant drug therapy
     Dosage: UNK
     Dates: start: 2018
  4. TACROLIMUS [Suspect]
     Active Substance: TACROLIMUS
     Indication: Immunosuppressant drug therapy
     Dosage: UNK
     Dates: start: 2018
  5. MYCOPHENOLIC ACID [Suspect]
     Active Substance: MYCOPHENOLIC ACID
     Indication: Immunosuppressant drug therapy
     Dosage: UNK
     Dates: start: 2018
  6. ALLOPURINOL [Concomitant]
     Active Substance: ALLOPURINOL
     Indication: Adenine phosphoribosyl transferase deficiency
     Dosage: 100 MG, 1X/DAY
     Dates: start: 2013
  7. ALLOPURINOL [Concomitant]
     Active Substance: ALLOPURINOL
     Dosage: 600 MG, 1X/DAY
  8. ALLOPURINOL [Concomitant]
     Active Substance: ALLOPURINOL
     Dosage: 150 MG, 1X/DAY
  9. ALLOPURINOL [Concomitant]
     Active Substance: ALLOPURINOL
     Dosage: 400 MG, 1X/DAY
     Dates: start: 2018
  10. FEBUXOSTAT [Concomitant]
     Active Substance: FEBUXOSTAT
     Indication: Adenine phosphoribosyl transferase deficiency
     Dosage: 20 MG, UNK
     Dates: start: 2018
  11. FEBUXOSTAT [Concomitant]
     Active Substance: FEBUXOSTAT
     Dosage: 40 MG, UNK
     Dates: start: 2018
  12. FEBUXOSTAT [Concomitant]
     Active Substance: FEBUXOSTAT
     Dosage: 60 MG, UNK
     Dates: start: 2018

REACTIONS (3)
  - Cytomegalovirus infection [Unknown]
  - Cytomegalovirus nephritis [Recovering/Resolving]
  - Cytomegalovirus colitis [Unknown]

NARRATIVE: CASE EVENT DATE: 20180501
